FAERS Safety Report 7703668-7 (Version None)
Quarter: 2011Q3

REPORT INFORMATION
  Report Type: 
  Country: None (occurrence: None)
  Receive Date: 20110823
  Receipt Date: 20110816
  Transmission Date: 20111222
  Serious: Yes (Other)
  Sender: FDA-Public Use
  Company Number: US-PFIZER INC-2011168133

PATIENT
  Sex: Male

DRUGS (2)
  1. SUTENT [Suspect]
     Indication: RENAL CELL CARCINOMA
     Dosage: 50 MG, DAILY 2 WKS
     Route: 048
     Dates: start: 20101201
  2. SUTENT [Suspect]
     Dosage: 25 MG, DAILY 5 MTHS
     Route: 048
     Dates: start: 20101201, end: 20110501

REACTIONS (2)
  - PANCYTOPENIA [None]
  - LUNG DISORDER [None]
